FAERS Safety Report 11825430 (Version 2)
Quarter: 2015Q4

REPORT INFORMATION
  Report Type: Report from Study
  Country: CA (occurrence: CA)
  Receive Date: 20151211
  Receipt Date: 20151215
  Transmission Date: 20160305
  Serious: Yes (Other)
  Sender: FDA-Public Use
  Company Number: CA-ROCHE-1594280

PATIENT
  Age: 21 Year
  Sex: Male
  Weight: 110 kg

DRUGS (9)
  1. RITUXAN [Suspect]
     Active Substance: RITUXIMAB
     Indication: GRANULOMATOSIS WITH POLYANGIITIS
     Route: 042
     Dates: start: 20130502
  2. PREDNISONE. [Concomitant]
     Active Substance: PREDNISONE
  3. ACETYLSALICYLIC ACID [Concomitant]
     Active Substance: ASPIRIN
  4. RITUXAN [Suspect]
     Active Substance: RITUXIMAB
     Dosage: UNKNOWN X 1 DOSE
     Route: 042
     Dates: start: 20131219
  5. SULFATRIM (SULFAMETHOXAZOLE/TRIMETHOPRIM) [Concomitant]
  6. RITUXAN [Suspect]
     Active Substance: RITUXIMAB
     Route: 042
     Dates: start: 20141219
  7. CANDESARTAN [Suspect]
     Active Substance: CANDESARTAN
     Indication: PROTEIN URINE PRESENT
     Route: 065
     Dates: start: 201505, end: 201508
  8. PANTOLOC [Concomitant]
     Active Substance: PANTOPRAZOLE SODIUM
  9. WARFARIN [Concomitant]
     Active Substance: WARFARIN

REACTIONS (5)
  - Protein urine present [Unknown]
  - Heart rate decreased [Unknown]
  - Oropharyngeal pain [Recovered/Resolved]
  - Urticaria [Recovering/Resolving]
  - Pharyngeal oedema [Not Recovered/Not Resolved]

NARRATIVE: CASE EVENT DATE: 20150612
